FAERS Safety Report 5416443-3 (Version None)
Quarter: 2007Q3

REPORT INFORMATION
  Report Type: 
  Country: None (occurrence: None)
  Receive Date: 20070813
  Receipt Date: 20070813
  Transmission Date: 20080115
  Serious: Yes (Other)
  Sender: FDA-Public Use
  Company Number: None

PATIENT
  Age: 88 Year
  Sex: Male
  Weight: 76.2043 kg

DRUGS (4)
  1. ZOCOR [Suspect]
     Indication: BLOOD CHOLESTEROL INCREASED
     Dates: start: 20020202, end: 20030927
  2. AVAPRO [Concomitant]
  3. ALLEGRA [Concomitant]
  4. FLOMAX [Concomitant]

REACTIONS (5)
  - ASTHENIA [None]
  - EXERCISE TOLERANCE DECREASED [None]
  - MUSCLE SPASMS [None]
  - MYALGIA [None]
  - PAIN IN EXTREMITY [None]
